FAERS Safety Report 10410549 (Version 1)
Quarter: 2014Q3

REPORT INFORMATION
  Report Type: Spontaneous
  Country: US (occurrence: US)
  Receive Date: 20140826
  Receipt Date: 20140826
  Transmission Date: 20150326
  Serious: Yes (Other)
  Sender: FDA-Public Use
  Company Number: US-BRISTOL-MYERS SQUIBB COMPANY-19784289

PATIENT
  Age: 72 Year
  Sex: Female
  Weight: 83.9 kg

DRUGS (12)
  1. BENADRYL [Concomitant]
     Active Substance: DIPHENHYDRAMINE HYDROCHLORIDE
  2. RAMIPRIL. [Concomitant]
     Active Substance: RAMIPRIL
  3. PREVALITE [Concomitant]
     Active Substance: CHOLESTYRAMINE
     Dosage: 1DF=4GM IN 5.5GM OF POWDER ?1PACK/D
  4. CLONAZEPAM. [Concomitant]
     Active Substance: CLONAZEPAM
  5. ASPIRIN. [Concomitant]
     Active Substance: ASPIRIN
  6. LEVOTHYROXINE [Concomitant]
     Active Substance: LEVOTHYROXINE
     Dosage: HALF ON SUNDAY
  7. ATORVASTATIN [Concomitant]
     Active Substance: ATORVASTATIN
  8. AMLODIPINE BESYLATE. [Concomitant]
     Active Substance: AMLODIPINE BESYLATE
  9. KENALOG-40 [Suspect]
     Active Substance: TRIAMCINOLONE ACETONIDE
     Dates: start: 20131028
  10. VITAMIN D3 [Concomitant]
     Active Substance: CHOLECALCIFEROL
     Dosage: 1DF=1000 UNITS
  11. BYSTOLIC [Concomitant]
     Active Substance: NEBIVOLOL HYDROCHLORIDE
  12. HYDROCHLOROTHIAZIDE. [Concomitant]
     Active Substance: HYDROCHLOROTHIAZIDE
     Dosage: 1DF-HALF TABLET OF 25MG TAB

REACTIONS (10)
  - Gastrointestinal disorder [Unknown]
  - Nervousness [Unknown]
  - Urine output increased [Unknown]
  - Insomnia [Unknown]
  - Dyspnoea [Unknown]
  - Hypertension [Unknown]
  - Headache [Unknown]
  - Feeling jittery [Unknown]
  - Arrhythmia [Unknown]
  - Weight decreased [Unknown]

NARRATIVE: CASE EVENT DATE: 2013
